FAERS Safety Report 7963628-8 (Version None)
Quarter: 2011Q4

REPORT INFORMATION
  Report Type: 
  Country: None (occurrence: None)
  Receive Date: 20111208
  Receipt Date: 20111127
  Transmission Date: 20120403
  Serious: Yes (Hospitalization)
  Sender: FDA-Public Use
  Company Number: NO-JNJFOC-20111111537

PATIENT
  Age: 32 Year
  Sex: Female

DRUGS (5)
  1. REMICADE [Suspect]
     Route: 042
  2. REMICADE [Suspect]
     Route: 042
     Dates: start: 20090101
  3. PREDNISONE [Concomitant]
     Indication: PREMEDICATION
     Route: 065
  4. REMICADE [Suspect]
     Indication: CROHN'S DISEASE
     Route: 042
     Dates: start: 20071101
  5. REMICADE [Suspect]
     Route: 042
     Dates: start: 20080401

REACTIONS (5)
  - MUSCULOSKELETAL STIFFNESS [None]
  - PAIN [None]
  - ABASIA [None]
  - JOINT STIFFNESS [None]
  - CROHN'S DISEASE [None]
